FAERS Safety Report 20141213 (Version 1)
Quarter: 2021Q4

REPORT INFORMATION
  Report Type: Spontaneous
  Country: RU (occurrence: RU)
  Receive Date: 20211202
  Receipt Date: 20211202
  Transmission Date: 20220303
  Serious: Yes (Other)
  Sender: FDA-Public Use
  Company Number: RU-TEVA-2021-RU-1983529

PATIENT
  Age: 65 Year
  Sex: Female

DRUGS (1)
  1. ATENOLOL [Suspect]
     Active Substance: ATENOLOL
     Dosage: THE CONSUMER TOOK 4 TABLETS (50 MG MORNING/EVENING FOR TWO DAYS (MONDAY AND TUESDAY))
     Route: 065
     Dates: start: 202101

REACTIONS (6)
  - Altered state of consciousness [Unknown]
  - Withdrawal syndrome [Unknown]
  - Heart rate irregular [Unknown]
  - Drug ineffective [Unknown]
  - Product counterfeit [Unknown]
  - Product substitution issue [Unknown]
